FAERS Safety Report 7916146-7 (Version None)
Quarter: 2011Q4

REPORT INFORMATION
  Report Type: 
  Country: None (occurrence: None)
  Receive Date: 20111116
  Receipt Date: 20111110
  Transmission Date: 20120403
  Serious: Yes (Hospitalization)
  Sender: FDA-Public Use
  Company Number: DE-BIOGENIDEC-2011BI033729

PATIENT
  Age: 46 Year
  Sex: Female
  Weight: 72 kg

DRUGS (5)
  1. ESCITALOPRAM [Concomitant]
     Indication: DEPRESSION
     Dates: start: 20080818
  2. AVONEX [Suspect]
     Route: 030
     Dates: start: 20110909
  3. SUMATRIPTAN [Concomitant]
     Indication: MIGRAINE
     Dates: start: 20090824
  4. TRIMIPRAMINE MALEATE [Concomitant]
     Indication: PRODUCT USED FOR UNKNOWN INDICATION
  5. AVONEX [Suspect]
     Indication: MULTIPLE SCLEROSIS
     Route: 030
     Dates: start: 20100810, end: 20110620

REACTIONS (1)
  - ARTHROPATHY [None]
